FAERS Safety Report 5916668-4 (Version None)
Quarter: 2008Q4

REPORT INFORMATION
  Report Type: 
  Country: None (occurrence: None)
  Receive Date: 20081013
  Receipt Date: 20081002
  Transmission Date: 20090506
  Serious: Yes (Hospitalization)
  Sender: FDA-Public Use
  Company Number: JP-PURDUE-MAG_2008_0000729

PATIENT
  Age: 45 Year
  Sex: Male

DRUGS (7)
  1. OXYCODONE HCL [Suspect]
     Indication: DRUG USE FOR UNKNOWN INDICATION
     Route: 065
  2. OXYCODONE HCL [Suspect]
     Indication: DRUG USE FOR UNKNOWN INDICATION
     Route: 065
  3. NOVAMIN                            /00013301/ [Suspect]
     Indication: PROPHYLAXIS OF NAUSEA AND VOMITING
     Dosage: 5 MG, TID
     Route: 048
     Dates: start: 20080813, end: 20080821
  4. JU-KAMA [Concomitant]
     Route: 065
  5. PURSENNID                          /01627401/ [Concomitant]
     Route: 065
  6. LENDORMIN [Concomitant]
     Route: 065
  7. GASMOTIN [Concomitant]
     Route: 065

REACTIONS (1)
  - PARKINSONISM [None]
